FAERS Safety Report 5863211-4 (Version None)
Quarter: 2008Q3

REPORT INFORMATION
  Report Type: 
  Country: None (occurrence: None)
  Receive Date: 20080828
  Receipt Date: 20080821
  Transmission Date: 20090109
  Serious: Yes (Death, Hospitalization, Other)
  Sender: FDA-Public Use
  Company Number: CN-AVENTIS-200817578GDDC

PATIENT
  Age: 51 Year
  Sex: Female

DRUGS (1)
  1. TAXOTERE [Suspect]
     Indication: BREAST CANCER
     Route: 042
     Dates: start: 20080731, end: 20080731

REACTIONS (7)
  - AGRANULOCYTOSIS [None]
  - CARDIAC FAILURE [None]
  - ENDOTRACHEAL INTUBATION COMPLICATION [None]
  - PNEUMOTHORAX [None]
  - PYREXIA [None]
  - SEPTIC SHOCK [None]
  - SUBCUTANEOUS EMPHYSEMA [None]
